FAERS Safety Report 5341222-5 (Version None)
Quarter: 2007Q2

REPORT INFORMATION
  Report Type: 
  Country: None (occurrence: None)
  Receive Date: 20070405
  Receipt Date: 20070115
  Transmission Date: 20071010
  Serious: No
  Sender: FDA-Public Use
  Company Number: US200701002460

PATIENT
  Age: 55 Year
  Sex: Male

DRUGS (7)
  1. CYMBALTA [Suspect]
     Indication: DEPRESSION
     Dosage: 30 MG
     Dates: start: 20070108, end: 20070109
  2. LEXAPRO /USA/ (ESCITALOPRAM) [Concomitant]
  3. PROZAC [Concomitant]
  4. CELEBREX [Concomitant]
  5. VICODIN [Concomitant]
  6. LORAZEPAM [Concomitant]
  7. DILAUDID /CAN/ (HYDROMORPHONE HYDROCHLORIDE) [Concomitant]

REACTIONS (1)
  - BALANCE DISORDER [None]
